FAERS Safety Report 5628484-1 (Version None)
Quarter: 2008Q1

REPORT INFORMATION
  Report Type: 
  Country: None (occurrence: None)
  Receive Date: 20080215
  Receipt Date: 20080206
  Transmission Date: 20080703
  Serious: Yes (Hospitalization)
  Sender: FDA-Public Use
  Company Number: CA-PFIZER INC-2008008702

PATIENT
  Sex: Male
  Weight: 35.3 kg

DRUGS (17)
  1. BLINDED AZITHROMYCIN [Suspect]
     Indication: CYSTIC FIBROSIS
     Route: 048
  2. SYMBICORT [Concomitant]
     Indication: CYSTIC FIBROSIS
  3. BETHANECHOL [Concomitant]
  4. URSODIOL [Concomitant]
     Dates: start: 20080110
  5. COTAZYM [Concomitant]
     Dates: start: 20070208
  6. VITAMIN E [Concomitant]
  7. VENTOLIN [Concomitant]
  8. VITAMIN CAP [Concomitant]
  9. PULMOZYME [Concomitant]
     Dates: start: 20071122
  10. NASACORT [Concomitant]
     Dates: start: 20080110
  11. RANITIDINE [Concomitant]
     Dates: start: 20080110
  12. DOMPERIDONE [Concomitant]
     Dates: start: 20071130
  13. ALBUTEROL [Concomitant]
     Route: 055
     Dates: start: 20080110
  14. ADEKS [Concomitant]
     Dates: start: 20080110
  15. SODIUM BICARBONATE [Concomitant]
     Dates: start: 20080110
  16. TPN [Concomitant]
     Dates: start: 20080110
  17. COTAZYM [Concomitant]
     Dates: start: 20071130

REACTIONS (1)
  - BURKHOLDERIA CEPACIA INFECTION [None]
